FAERS Safety Report 10244438 (Version 2)
Quarter: 2014Q2

REPORT INFORMATION
  Report Type: Spontaneous
  Country: JP (occurrence: JP)
  Receive Date: 20140618
  Receipt Date: 20140630
  Transmission Date: 20141212
  Serious: Yes (Death, Other)
  Sender: FDA-Public Use
  Company Number: JP-SA-2014SA080296

PATIENT
  Age: 65 Year
  Sex: Male

DRUGS (44)
  1. ELPLAT [Suspect]
     Indication: COLON CANCER
     Route: 041
     Dates: start: 20120905, end: 20120905
  2. ELPLAT [Suspect]
     Indication: COLON CANCER
     Route: 041
     Dates: start: 20120919, end: 20120919
  3. ELPLAT [Suspect]
     Indication: COLON CANCER
     Route: 041
     Dates: start: 20121226, end: 20121226
  4. ELPLAT [Suspect]
     Indication: COLON CANCER
     Route: 041
     Dates: start: 20130109, end: 20130109
  5. ELPLAT [Suspect]
     Indication: COLON CANCER
     Route: 041
     Dates: start: 20130123, end: 20130123
  6. ELPLAT [Suspect]
     Indication: COLON CANCER
     Route: 041
     Dates: start: 20130206, end: 20130206
  7. ELPLAT [Suspect]
     Indication: COLON CANCER
     Route: 041
     Dates: start: 20130220, end: 20130220
  8. ELPLAT [Suspect]
     Indication: COLON CANCER
     Route: 041
     Dates: start: 20130306, end: 20130306
  9. ELPLAT [Suspect]
     Indication: COLON CANCER
     Route: 041
     Dates: start: 20130320, end: 20130320
  10. ELPLAT [Suspect]
     Indication: COLON CANCER
     Route: 041
     Dates: start: 20130403, end: 20130403
  11. ELPLAT [Suspect]
     Indication: COLON CANCER
     Route: 041
     Dates: start: 20130417, end: 20130417
  12. ELPLAT [Suspect]
     Indication: COLON CANCER
     Route: 041
     Dates: start: 20130501, end: 20130501
  13. ELPLAT [Suspect]
     Indication: COLON CANCER
     Route: 041
     Dates: start: 20130515, end: 20130515
  14. ELPLAT [Suspect]
     Indication: COLON CANCER
     Route: 041
     Dates: start: 20130529, end: 20130529
  15. ELPLAT [Suspect]
     Indication: COLON CANCER
     Route: 041
     Dates: start: 20130612, end: 20130612
  16. ELPLAT [Suspect]
     Indication: COLON CANCER
     Route: 041
     Dates: start: 20130626, end: 20130626
  17. ELPLAT [Suspect]
     Indication: COLON CANCER
     Route: 041
     Dates: start: 20130610, end: 20130710
  18. ELPLAT [Suspect]
     Indication: COLON CANCER
     Route: 041
     Dates: start: 20130724, end: 20130724
  19. ELPLAT [Suspect]
     Indication: COLON CANCER
     Route: 041
     Dates: start: 20130807, end: 20130807
  20. ELPLAT [Suspect]
     Indication: COLON CANCER
     Route: 041
     Dates: start: 20130821, end: 20130821
  21. ELPLAT [Suspect]
     Indication: COLON CANCER
     Route: 041
     Dates: start: 20130904, end: 20130904
  22. AVASTIN [Suspect]
     Indication: COLON CANCER
     Route: 041
     Dates: start: 20120905, end: 20120905
  23. AVASTIN [Suspect]
     Indication: COLON CANCER
     Route: 041
     Dates: start: 20121226, end: 20121226
  24. AVASTIN [Suspect]
     Indication: COLON CANCER
     Route: 041
     Dates: start: 20130109, end: 20130109
  25. AVASTIN [Suspect]
     Indication: COLON CANCER
     Route: 041
     Dates: start: 20130123, end: 20130123
  26. AVASTIN [Suspect]
     Indication: COLON CANCER
     Route: 041
     Dates: start: 20130206, end: 20130206
  27. AVASTIN [Suspect]
     Indication: COLON CANCER
     Route: 041
     Dates: start: 20130220, end: 20130220
  28. AVASTIN [Suspect]
     Indication: COLON CANCER
     Route: 041
     Dates: start: 20130306, end: 20130306
  29. AVASTIN [Suspect]
     Indication: COLON CANCER
     Route: 041
     Dates: start: 20130320, end: 20130320
  30. AVASTIN [Suspect]
     Indication: COLON CANCER
     Route: 041
     Dates: start: 20130403, end: 20130403
  31. AVASTIN [Suspect]
     Indication: COLON CANCER
     Route: 041
     Dates: start: 20130417, end: 20130417
  32. AVASTIN [Suspect]
     Indication: COLON CANCER
     Route: 041
     Dates: start: 20130501, end: 20130501
  33. AVASTIN [Suspect]
     Indication: COLON CANCER
     Route: 041
     Dates: start: 20130515, end: 20130515
  34. AVASTIN [Suspect]
     Indication: COLON CANCER
     Route: 041
     Dates: start: 20130529, end: 20130529
  35. AVASTIN [Suspect]
     Indication: COLON CANCER
     Route: 041
     Dates: start: 20130612, end: 20130612
  36. AVASTIN [Suspect]
     Indication: COLON CANCER
     Route: 041
     Dates: start: 20130626, end: 20130626
  37. AVASTIN [Suspect]
     Indication: COLON CANCER
     Route: 041
     Dates: start: 20130710, end: 20130710
  38. AVASTIN [Suspect]
     Indication: COLON CANCER
     Route: 041
     Dates: start: 20130724, end: 20130724
  39. AVASTIN [Suspect]
     Indication: COLON CANCER
     Route: 041
     Dates: start: 20130807, end: 20130807
  40. AVASTIN [Suspect]
     Indication: COLON CANCER
     Route: 041
     Dates: start: 20130821, end: 20130821
  41. AVASTIN [Suspect]
     Indication: COLON CANCER
     Route: 041
     Dates: start: 20130904, end: 20130904
  42. AVASTIN [Suspect]
     Indication: COLON CANCER
     Route: 041
     Dates: start: 20120919, end: 20120919
  43. CALCIUM LEVOFOLINATE [Concomitant]
     Dates: start: 20120905, end: 20130904
  44. 5-FU [Concomitant]
     Dosage: FLUOROURACIL 2400 MG/M2/D1-2 CONTINUOUS INFUSION
     Dates: start: 20120905, end: 20130904

REACTIONS (4)
  - Hypoglycaemia [Fatal]
  - Retroperitoneal abscess [Unknown]
  - Diarrhoea [Unknown]
  - Gastrointestinal perforation [Unknown]
